FAERS Safety Report 23795579 (Version 1)
Quarter: 2024Q2

REPORT INFORMATION
  Report Type: Report from Study
  Country: PH (occurrence: PH)
  Receive Date: 20240429
  Receipt Date: 20240429
  Transmission Date: 20240715
  Serious: Yes (Death)
  Sender: FDA-Public Use
  Company Number: PH-OTSUKA-2024_012067

PATIENT
  Age: 83 Year
  Sex: Male

DRUGS (3)
  1. TOLVAPTAN [Suspect]
     Active Substance: TOLVAPTAN
     Indication: Renal disorder
     Dosage: 0.5 DF (15 MG HALF TABLET EVERY MONDAY AND THURSDAY)
     Route: 048
     Dates: start: 202310
  2. TOLVAPTAN [Suspect]
     Active Substance: TOLVAPTAN
     Indication: Diabetes mellitus
  3. TOLVAPTAN [Suspect]
     Active Substance: TOLVAPTAN
     Indication: Hypertension

REACTIONS (4)
  - Death [Fatal]
  - Wrong technique in product usage process [Unknown]
  - Inappropriate schedule of product administration [Unknown]
  - Product use in unapproved indication [Unknown]

NARRATIVE: CASE EVENT DATE: 20231001
